FAERS Safety Report 17823379 (Version 1)
Quarter: 2020Q2

REPORT INFORMATION
  Report Type: Spontaneous
  Country: US (occurrence: US)
  Receive Date: 20200523
  Receipt Date: 20200523
  Transmission Date: 20200714
  Serious: Yes (Disabling)
  Sender: FDA-Public Use
  Company Number: None

PATIENT
  Age: 56 Year
  Sex: Male
  Weight: 108 kg

DRUGS (5)
  1. SIMVASTATIN. [Concomitant]
     Active Substance: SIMVASTATIN
  2. AVAPRO [Concomitant]
     Active Substance: IRBESARTAN
  3. CELEXA [Concomitant]
     Active Substance: CITALOPRAM HYDROBROMIDE
  4. DIATERIC [Concomitant]
  5. RIBOFLAVIN [Suspect]
     Active Substance: RIBOFLAVIN
     Indication: EYE DISORDER
     Dosage: ?          QUANTITY:1 DROP(S);OTHER FREQUENCY:ONCE;?
     Route: 047

REACTIONS (1)
  - Off label use [None]

NARRATIVE: CASE EVENT DATE: 20170501
